FAERS Safety Report 18053063 (Version 3)
Quarter: 2020Q4

REPORT INFORMATION
  Report Type: Report from Study
  Country: US (occurrence: US)
  Receive Date: 20200722
  Receipt Date: 20201222
  Transmission Date: 20210113
  Serious: Yes (Other)
  Sender: FDA-Public Use
  Company Number: US-CIPLA LTD.-2020US04783

PATIENT

DRUGS (8)
  1. ACTINOMYCIN D [Suspect]
     Active Substance: DACTINOMYCIN
     Indication: MESOBLASTIC NEPHROMA
     Dosage: UNK, ONE CYCLE
     Route: 065
  2. TOPOTECAN [Suspect]
     Active Substance: TOPOTECAN HYDROCHLORIDE
     Indication: MESOBLASTIC NEPHROMA
     Dosage: UNK
     Route: 065
  3. ACTINOMYCIN D [Suspect]
     Active Substance: DACTINOMYCIN
     Indication: CONGENITAL FIBROSARCOMA
     Dosage: UNK
     Route: 065
  4. VINCRISTINE [Suspect]
     Active Substance: VINCRISTINE
     Indication: CONGENITAL FIBROSARCOMA
     Dosage: UNK
     Route: 065
  5. VINCRISTINE [Suspect]
     Active Substance: VINCRISTINE
     Indication: MESOBLASTIC NEPHROMA
     Dosage: UNK, ONE CYCLE
     Route: 065
  6. CYCLOPHOSPHAMIDE. [Suspect]
     Active Substance: CYCLOPHOSPHAMIDE
     Indication: CONGENITAL FIBROSARCOMA
     Dosage: UNK, ADDITIONAL CHEMOTHERAPY
     Route: 065
  7. TOPOTECAN [Suspect]
     Active Substance: TOPOTECAN HYDROCHLORIDE
     Indication: CONGENITAL FIBROSARCOMA
     Dosage: UNK, ADDITIONAL CHEMOTHERAPY
     Route: 065
  8. CYCLOPHOSPHAMIDE. [Suspect]
     Active Substance: CYCLOPHOSPHAMIDE
     Indication: MESOBLASTIC NEPHROMA
     Dosage: UNK
     Route: 065

REACTIONS (3)
  - CNS ventriculitis [Unknown]
  - Enterococcal infection [Unknown]
  - Febrile neutropenia [Unknown]
